FAERS Safety Report 9989597 (Version 1)
Quarter: 2014Q1

REPORT INFORMATION
  Report Type: Report from Study
  Country: US (occurrence: US)
  Receive Date: 20140310
  Receipt Date: 20140310
  Transmission Date: 20141002
  Serious: No
  Sender: FDA-Public Use
  Company Number: US-ABBVIE-13P-163-1135868-00

PATIENT
  Sex: Female
  Weight: 63.56 kg

DRUGS (2)
  1. HUMIRA [Suspect]
     Indication: PSORIASIS
     Route: 058
     Dates: end: 2012
  2. HUMIRA [Suspect]
     Route: 058
     Dates: start: 201307

REACTIONS (2)
  - Hepatic enzyme increased [Recovered/Resolved]
  - Psoriasis [Recovering/Resolving]
